FAERS Safety Report 16725492 (Version 1)
Quarter: 2019Q3

REPORT INFORMATION
  Report Type: Spontaneous
  Country: US (occurrence: US)
  Receive Date: 20190705
  Receipt Date: 20190705
  Transmission Date: 20191005
  Serious: Yes (Hospitalization)
  Sender: FDA-Public Use
  Company Number: None

PATIENT
  Sex: Female

DRUGS (8)
  1. PRAZOSIN HCL CAP [Concomitant]
  2. CLONIDINE TAB [Concomitant]
  3. FLUOXETINE CAP [Concomitant]
  4. ZOLPIDEM TAB [Concomitant]
  5. ESBRIET [Suspect]
     Active Substance: PIRFENIDONE
     Dosage: ?          OTHER DOSE: 1 T;?
     Route: 048
     Dates: start: 20190614
  6. QUETIAPINE TAB [Concomitant]
  7. ESBRIET [Suspect]
     Active Substance: PIRFENIDONE
     Dosage: ?          OTHER DOSE:3 T;?
     Route: 048
  8. ALPRAZOLAM TAB [Concomitant]

REACTIONS (1)
  - Respiratory disorder [None]
